FAERS Safety Report 13105536 (Version 4)
Quarter: 2020Q1

REPORT INFORMATION
  Report Type: Other
  Country: CA (occurrence: CA)
  Receive Date: 20170111
  Receipt Date: 20200306
  Transmission Date: 20200409
  Serious: Yes (Life-Threatening, Other)
  Sender: FDA-Public Use
  Company Number: CA-ASTELLAS-2017US000605

PATIENT
  Age: 45 Year
  Sex: Female

DRUGS (152)
  1. PROGRAF [Suspect]
     Active Substance: TACROLIMUS
     Route: 048
  2. PROGRAF [Suspect]
     Active Substance: TACROLIMUS
     Route: 048
  3. PROGRAF [Suspect]
     Active Substance: TACROLIMUS
     Route: 048
  4. PROGRAF [Suspect]
     Active Substance: TACROLIMUS
     Route: 048
  5. PROGRAF [Suspect]
     Active Substance: TACROLIMUS
     Route: 048
  6. PROGRAF [Suspect]
     Active Substance: TACROLIMUS
     Dosage: 4 MG, OTHER (1 EVERY HOUR)
  7. TACROLIMUS. [Suspect]
     Active Substance: TACROLIMUS
     Indication: PRODUCT USED FOR UNKNOWN INDICATION
     Route: 048
  8. DACLIZUMAB [Suspect]
     Active Substance: DACLIZUMAB
     Route: 065
  9. ENBREL [Suspect]
     Active Substance: ETANERCEPT
     Route: 058
  10. ENBREL [Suspect]
     Active Substance: ETANERCEPT
     Route: 058
  11. ENBREL [Suspect]
     Active Substance: ETANERCEPT
     Route: 058
  12. MYCOPHENOLATE MOFETIL. [Suspect]
     Active Substance: MYCOPHENOLATE MOFETIL
     Route: 048
  13. ANTITHYMOCYTE IMMUNOGLOBULIN (RABBIT) [Suspect]
     Active Substance: LAPINE T-LYMPHOCYTE IMMUNE GLOBULIN
     Route: 058
  14. ANTITHYMOCYTE IMMUNOGLOBULIN [Suspect]
     Active Substance: THYMOCYTE IMMUNE GLOBULIN NOS
     Route: 065
  15. ANTITHYMOCYTE IMMUNOGLOBULIN [Suspect]
     Active Substance: THYMOCYTE IMMUNE GLOBULIN NOS
     Route: 065
  16. CELLCEPT [Suspect]
     Active Substance: MYCOPHENOLATE MOFETIL\MYCOPHENOLATE MOFETIL HYDROCHLORIDE
     Route: 048
  17. CELLCEPT [Suspect]
     Active Substance: MYCOPHENOLATE MOFETIL\MYCOPHENOLATE MOFETIL HYDROCHLORIDE
     Indication: TRANSPLANT
     Dosage: UNK, UNKNOWN FREQ.
     Route: 048
  18. PROGRAF [Suspect]
     Active Substance: TACROLIMUS
     Indication: TRANSPLANT
     Route: 048
  19. PROGRAF [Suspect]
     Active Substance: TACROLIMUS
     Route: 048
  20. PROGRAF [Suspect]
     Active Substance: TACROLIMUS
     Route: 048
  21. PROGRAF [Suspect]
     Active Substance: TACROLIMUS
     Route: 048
  22. PROGRAF [Suspect]
     Active Substance: TACROLIMUS
     Dosage: UNK UNK, UNKNOWN FREQ.
     Route: 048
  23. PROGRAF [Suspect]
     Active Substance: TACROLIMUS
     Route: 048
  24. PROGRAF [Suspect]
     Active Substance: TACROLIMUS
     Route: 048
  25. PROGRAF [Suspect]
     Active Substance: TACROLIMUS
     Route: 048
  26. PROGRAF [Suspect]
     Active Substance: TACROLIMUS
     Route: 048
  27. PROGRAF [Suspect]
     Active Substance: TACROLIMUS
     Dosage: 2000 MG, OTHER (1 EVERY HOUR)
  28. PROGRAF [Suspect]
     Active Substance: TACROLIMUS
     Route: 048
  29. TACROLIMUS. [Suspect]
     Active Substance: TACROLIMUS
     Route: 065
  30. ENBREL [Suspect]
     Active Substance: ETANERCEPT
     Route: 058
  31. ENBREL [Suspect]
     Active Substance: ETANERCEPT
     Route: 058
  32. ENBREL [Suspect]
     Active Substance: ETANERCEPT
     Route: 058
  33. ENBREL [Suspect]
     Active Substance: ETANERCEPT
     Route: 058
  34. ENBREL [Suspect]
     Active Substance: ETANERCEPT
     Route: 058
  35. NEORAL [Suspect]
     Active Substance: CYCLOSPORINE
     Indication: TRANSPLANT
     Dosage: UNK UNK, UNKNOWN FREQ.
     Route: 065
  36. ANTITHYMOCYTE IMMUNOGLOBULIN (RABBIT) [Suspect]
     Active Substance: LAPINE T-LYMPHOCYTE IMMUNE GLOBULIN
     Route: 065
  37. ANTITHYMOCYTE IMMUNOGLOBULIN (RABBIT) [Suspect]
     Active Substance: LAPINE T-LYMPHOCYTE IMMUNE GLOBULIN
     Route: 005
  38. CELLCEPT [Suspect]
     Active Substance: MYCOPHENOLATE MOFETIL\MYCOPHENOLATE MOFETIL HYDROCHLORIDE
     Indication: TRANSPLANT
     Route: 048
  39. TEMAZEPAM. [Suspect]
     Active Substance: TEMAZEPAM
     Indication: PRODUCT USED FOR UNKNOWN INDICATION
     Dosage: UNK UNK, UNKNOWN FREQ.
     Route: 065
  40. PROGRAF [Suspect]
     Active Substance: TACROLIMUS
     Route: 048
  41. PROGRAF [Suspect]
     Active Substance: TACROLIMUS
     Route: 048
  42. PROGRAF [Suspect]
     Active Substance: TACROLIMUS
     Route: 048
  43. PROGRAF [Suspect]
     Active Substance: TACROLIMUS
     Route: 048
  44. PROGRAF [Suspect]
     Active Substance: TACROLIMUS
     Dosage: UNK UNK, UNKNOWN FREQ.
     Route: 048
  45. TACROLIMUS. [Suspect]
     Active Substance: TACROLIMUS
     Route: 048
  46. TACROLIMUS. [Suspect]
     Active Substance: TACROLIMUS
     Route: 048
  47. TACROLIMUS. [Suspect]
     Active Substance: TACROLIMUS
     Route: 065
  48. DACLIZUMAB [Suspect]
     Active Substance: DACLIZUMAB
     Indication: TRANSPLANT
     Dosage: UNK, UNKNOWN FREQ.
     Route: 042
  49. DACLIZUMAB [Suspect]
     Active Substance: DACLIZUMAB
     Route: 042
  50. ENBREL [Suspect]
     Active Substance: ETANERCEPT
     Route: 058
  51. ENBREL [Suspect]
     Active Substance: ETANERCEPT
     Route: 058
  52. ENBREL [Suspect]
     Active Substance: ETANERCEPT
     Route: 058
  53. ENBREL [Suspect]
     Active Substance: ETANERCEPT
     Route: 048
  54. ENBREL [Suspect]
     Active Substance: ETANERCEPT
     Route: 058
  55. RAPAMUNE [Suspect]
     Active Substance: SIROLIMUS
     Indication: TRANSPLANT
     Dosage: UNK UNK, UNKNOWN FREQ.
     Route: 065
  56. REMICADE [Suspect]
     Active Substance: INFLIXIMAB
     Indication: PRODUCT USED FOR UNKNOWN INDICATION
     Dosage: UNK, UNKNOWN FREQ.
     Route: 042
  57. MYCOPHENOLATE MOFETIL. [Suspect]
     Active Substance: MYCOPHENOLATE MOFETIL
     Route: 048
  58. ANTITHYMOCYTE IMMUNOGLOBULIN (RABBIT) [Suspect]
     Active Substance: LAPINE T-LYMPHOCYTE IMMUNE GLOBULIN
     Route: 005
  59. ANTITHYMOCYTE IMMUNOGLOBULIN (HORSE) [Suspect]
     Active Substance: EQUINE THYMOCYTE IMMUNE GLOBULIN
     Route: 005
  60. CELLCEPT [Suspect]
     Active Substance: MYCOPHENOLATE MOFETIL\MYCOPHENOLATE MOFETIL HYDROCHLORIDE
     Route: 048
  61. CELLCEPT [Suspect]
     Active Substance: MYCOPHENOLATE MOFETIL\MYCOPHENOLATE MOFETIL HYDROCHLORIDE
     Route: 048
  62. GLICLAZIDE [Suspect]
     Active Substance: GLICLAZIDE
     Indication: PRODUCT USED FOR UNKNOWN INDICATION
     Dosage: UNK UNK, UNKNOWN FREQ.
     Route: 042
  63. PROGRAF [Suspect]
     Active Substance: TACROLIMUS
     Route: 048
  64. PROGRAF [Suspect]
     Active Substance: TACROLIMUS
     Route: 048
  65. PROGRAF [Suspect]
     Active Substance: TACROLIMUS
     Route: 048
  66. PROGRAF [Suspect]
     Active Substance: TACROLIMUS
     Route: 048
  67. PROGRAF [Suspect]
     Active Substance: TACROLIMUS
     Route: 048
  68. PROGRAF [Suspect]
     Active Substance: TACROLIMUS
     Route: 048
  69. PROGRAF [Suspect]
     Active Substance: TACROLIMUS
     Dosage: 1000 MG, OTHER (2 EVERY 1 HOURS)
     Route: 048
  70. PROGRAF [Suspect]
     Active Substance: TACROLIMUS
     Route: 048
  71. TACROLIMUS. [Suspect]
     Active Substance: TACROLIMUS
     Route: 048
  72. TACROLIMUS. [Suspect]
     Active Substance: TACROLIMUS
     Route: 048
  73. TACROLIMUS. [Suspect]
     Active Substance: TACROLIMUS
     Route: 048
  74. TACROLIMUS. [Suspect]
     Active Substance: TACROLIMUS
     Route: 048
  75. TACROLIMUS. [Suspect]
     Active Substance: TACROLIMUS
     Route: 065
  76. TACROLIMUS. [Suspect]
     Active Substance: TACROLIMUS
     Route: 065
  77. ENBREL [Suspect]
     Active Substance: ETANERCEPT
     Route: 048
  78. ENBREL [Suspect]
     Active Substance: ETANERCEPT
     Route: 058
  79. ANTITHYMOCYTE IMMUNOGLOBULIN (RABBIT) [Suspect]
     Active Substance: LAPINE T-LYMPHOCYTE IMMUNE GLOBULIN
     Route: 005
  80. ANTITHYMOCYTE IMMUNOGLOBULIN (HORSE) [Suspect]
     Active Substance: EQUINE THYMOCYTE IMMUNE GLOBULIN
     Indication: TRANSPLANT
     Route: 005
  81. DACLIZUMAB [Suspect]
     Active Substance: DACLIZUMAB
     Indication: PRODUCT USED FOR UNKNOWN INDICATION
     Route: 065
  82. PROGRAF [Suspect]
     Active Substance: TACROLIMUS
     Dosage: UNK UNK, UNKNOWN FREQ.
     Route: 048
  83. PROGRAF [Suspect]
     Active Substance: TACROLIMUS
     Route: 048
  84. PROGRAF [Suspect]
     Active Substance: TACROLIMUS
     Indication: TRANSPLANT
     Route: 048
  85. PROGRAF [Suspect]
     Active Substance: TACROLIMUS
     Route: 048
  86. PROGRAF [Suspect]
     Active Substance: TACROLIMUS
     Route: 048
  87. PROGRAF [Suspect]
     Active Substance: TACROLIMUS
     Dosage: 3 MG, OTHER (2 EVERY 1 HOURS)
     Route: 048
  88. PROGRAF [Suspect]
     Active Substance: TACROLIMUS
     Route: 048
  89. PROGRAF [Suspect]
     Active Substance: TACROLIMUS
     Route: 048
  90. TACROLIMUS. [Suspect]
     Active Substance: TACROLIMUS
     Route: 048
  91. TACROLIMUS. [Suspect]
     Active Substance: TACROLIMUS
     Route: 065
  92. DACLIZUMAB [Suspect]
     Active Substance: DACLIZUMAB
     Dosage: UNK UNK, ONCE DAILY
     Route: 042
  93. ENBREL [Suspect]
     Active Substance: ETANERCEPT
     Route: 058
  94. ENBREL [Suspect]
     Active Substance: ETANERCEPT
     Route: 058
  95. ENBREL [Suspect]
     Active Substance: ETANERCEPT
     Route: 058
  96. ENBREL [Suspect]
     Active Substance: ETANERCEPT
     Route: 058
  97. ENBREL [Suspect]
     Active Substance: ETANERCEPT
     Route: 058
  98. ENBREL [Suspect]
     Active Substance: ETANERCEPT
     Route: 058
  99. ENBREL [Suspect]
     Active Substance: ETANERCEPT
     Route: 058
  100. MYCOPHENOLATE MOFETIL. [Suspect]
     Active Substance: MYCOPHENOLATE MOFETIL
     Indication: TRANSPLANT
     Route: 048
  101. MYCOPHENOLATE MOFETIL. [Suspect]
     Active Substance: MYCOPHENOLATE MOFETIL
     Route: 048
  102. ANTITHYMOCYTE IMMUNOGLOBULIN (RABBIT) [Suspect]
     Active Substance: LAPINE T-LYMPHOCYTE IMMUNE GLOBULIN
     Indication: TRANSPLANT
     Dosage: 6.0 MG/KG, UNKNOWN FREQ.
     Route: 065
  103. ANTITHYMOCYTE IMMUNOGLOBULIN (RABBIT) [Suspect]
     Active Substance: LAPINE T-LYMPHOCYTE IMMUNE GLOBULIN
     Dosage: 6.0 MG/KG, UNKNOWN FREQ.
     Route: 065
  104. ANTITHYMOCYTE IMMUNOGLOBULIN (RABBIT) [Suspect]
     Active Substance: LAPINE T-LYMPHOCYTE IMMUNE GLOBULIN
     Indication: TRANSPLANT
     Route: 065
  105. SULFASALAZINE. [Suspect]
     Active Substance: SULFASALAZINE
     Indication: PRODUCT USED FOR UNKNOWN INDICATION
     Dosage: UNK, UNKNOWN FREQ.
     Route: 065
  106. ANTITHYMOCYTE IMMUNOGLOBULIN (HORSE) [Suspect]
     Active Substance: EQUINE THYMOCYTE IMMUNE GLOBULIN
     Indication: PRODUCT USED FOR UNKNOWN INDICATION
     Dosage: UNK, UNKNOWN FREQ.
     Route: 065
  107. EQUINE THYMOCYTE IMMUNE GLOBULIN [Suspect]
     Active Substance: EQUINE THYMOCYTE IMMUNE GLOBULIN
     Indication: PRODUCT USED FOR UNKNOWN INDICATION
     Route: 065
  108. EQUINE THYMOCYTE IMMUNE GLOBULIN [Suspect]
     Active Substance: EQUINE THYMOCYTE IMMUNE GLOBULIN
     Dosage: 0.6 MG, UNKNOWN FREQ.
     Route: 065
  109. CELLCEPT [Suspect]
     Active Substance: MYCOPHENOLATE MOFETIL\MYCOPHENOLATE MOFETIL HYDROCHLORIDE
     Route: 048
  110. PROGRAF [Suspect]
     Active Substance: TACROLIMUS
     Dosage: 2 MG, OTHER (2 EVERY 1 HOURS)
     Route: 048
  111. PROGRAF [Suspect]
     Active Substance: TACROLIMUS
     Route: 048
  112. TACROLIMUS. [Suspect]
     Active Substance: TACROLIMUS
     Route: 048
  113. TACROLIMUS. [Suspect]
     Active Substance: TACROLIMUS
     Route: 065
  114. ENBREL [Suspect]
     Active Substance: ETANERCEPT
     Route: 058
  115. ENBREL [Suspect]
     Active Substance: ETANERCEPT
     Route: 058
  116. ANTITHYMOCYTE IMMUNOGLOBULIN (RABBIT) [Suspect]
     Active Substance: LAPINE T-LYMPHOCYTE IMMUNE GLOBULIN
     Route: 065
  117. CELLCEPT [Suspect]
     Active Substance: MYCOPHENOLATE MOFETIL\MYCOPHENOLATE MOFETIL HYDROCHLORIDE
     Indication: TRANSPLANT
     Dosage: UNK, UNKNOWN FREQ.
     Route: 048
  118. PROGRAF [Suspect]
     Active Substance: TACROLIMUS
     Route: 048
  119. PROGRAF [Suspect]
     Active Substance: TACROLIMUS
     Route: 048
  120. PROGRAF [Suspect]
     Active Substance: TACROLIMUS
     Route: 048
  121. PROGRAF [Suspect]
     Active Substance: TACROLIMUS
     Route: 048
  122. PROGRAF [Suspect]
     Active Substance: TACROLIMUS
     Route: 048
  123. PROGRAF [Suspect]
     Active Substance: TACROLIMUS
     Route: 048
  124. PROGRAF [Suspect]
     Active Substance: TACROLIMUS
     Route: 048
  125. PROGRAF [Suspect]
     Active Substance: TACROLIMUS
     Route: 048
  126. PROGRAF [Suspect]
     Active Substance: TACROLIMUS
     Route: 048
  127. PROGRAF [Suspect]
     Active Substance: TACROLIMUS
     Route: 048
  128. DACLIZUMAB [Suspect]
     Active Substance: DACLIZUMAB
     Route: 042
  129. DACLIZUMAB [Suspect]
     Active Substance: DACLIZUMAB
     Dosage: UNK UNK, ONCE DAILY
     Route: 042
  130. ENBREL [Suspect]
     Active Substance: ETANERCEPT
     Indication: PRODUCT USED FOR UNKNOWN INDICATION
     Route: 058
  131. ENBREL [Suspect]
     Active Substance: ETANERCEPT
     Route: 058
  132. ENBREL [Suspect]
     Active Substance: ETANERCEPT
     Route: 058
  133. ENBREL [Suspect]
     Active Substance: ETANERCEPT
     Route: 048
  134. ANTITHYMOCYTE IMMUNOGLOBULIN (RABBIT) [Suspect]
     Active Substance: LAPINE T-LYMPHOCYTE IMMUNE GLOBULIN
     Dosage: 6.0 MG/KG, UNKNOWN FREQ.
     Route: 065
  135. ANTITHYMOCYTE IMMUNOGLOBULIN (RABBIT) [Suspect]
     Active Substance: LAPINE T-LYMPHOCYTE IMMUNE GLOBULIN
     Route: 005
  136. CELLCEPT [Suspect]
     Active Substance: MYCOPHENOLATE MOFETIL\MYCOPHENOLATE MOFETIL HYDROCHLORIDE
     Route: 048
  137. CELLCEPT [Suspect]
     Active Substance: MYCOPHENOLATE MOFETIL\MYCOPHENOLATE MOFETIL HYDROCHLORIDE
     Route: 048
  138. CELLCEPT [Suspect]
     Active Substance: MYCOPHENOLATE MOFETIL\MYCOPHENOLATE MOFETIL HYDROCHLORIDE
     Route: 048
  139. PROGRAF [Suspect]
     Active Substance: TACROLIMUS
     Dosage: UNK UNK, UNKNOWN FREQ.
     Route: 048
  140. PROGRAF [Suspect]
     Active Substance: TACROLIMUS
     Dosage: UNK UNK, UNKNOWN FREQ.
     Route: 048
  141. PROGRAF [Suspect]
     Active Substance: TACROLIMUS
     Route: 048
  142. PROGRAF [Suspect]
     Active Substance: TACROLIMUS
     Route: 048
  143. PROGRAF [Suspect]
     Active Substance: TACROLIMUS
     Dosage: 6 MG, OTHER (1 EVERY HOUR)
  144. DACLIZUMAB [Suspect]
     Active Substance: DACLIZUMAB
     Dosage: UNK UNK, ONCE DAILY
     Route: 042
  145. ENBREL [Suspect]
     Active Substance: ETANERCEPT
     Route: 065
  146. ENBREL [Suspect]
     Active Substance: ETANERCEPT
     Route: 058
  147. MYCOPHENOLATE MOFETIL. [Suspect]
     Active Substance: MYCOPHENOLATE MOFETIL
     Route: 048
  148. MYCOPHENOLATE MOFETIL. [Suspect]
     Active Substance: MYCOPHENOLATE MOFETIL
     Route: 048
  149. ANTITHYMOCYTE IMMUNOGLOBULIN (RABBIT) [Suspect]
     Active Substance: LAPINE T-LYMPHOCYTE IMMUNE GLOBULIN
     Route: 065
  150. ANTITHYMOCYTE IMMUNOGLOBULIN [Suspect]
     Active Substance: THYMOCYTE IMMUNE GLOBULIN NOS
     Indication: TRANSPLANT
     Route: 065
  151. ANTITHYMOCYTE IMMUNOGLOBULIN [Suspect]
     Active Substance: THYMOCYTE IMMUNE GLOBULIN NOS
     Route: 065
  152. DACLIZUMAB [Suspect]
     Active Substance: DACLIZUMAB
     Dosage: UNK, UNKNOWN FREQ.
     Route: 065

REACTIONS (15)
  - Liver function test abnormal [Not Recovered/Not Resolved]
  - Alopecia [Not Recovered/Not Resolved]
  - Pneumonia [Not Recovered/Not Resolved]
  - Acne [Not Recovered/Not Resolved]
  - Drug ineffective [Not Recovered/Not Resolved]
  - Transplant dysfunction [Not Recovered/Not Resolved]
  - Ovarian cyst [Not Recovered/Not Resolved]
  - Loss of personal independence in daily activities [Not Recovered/Not Resolved]
  - Product use issue [Not Recovered/Not Resolved]
  - Transplant rejection [Not Recovered/Not Resolved]
  - Condition aggravated [Not Recovered/Not Resolved]
  - Rheumatoid arthritis [Not Recovered/Not Resolved]
  - Pain [Not Recovered/Not Resolved]
  - Sleep disorder due to general medical condition, insomnia type [Not Recovered/Not Resolved]
  - Overdose [Not Recovered/Not Resolved]
